FAERS Safety Report 23295431 (Version 1)
Quarter: 2023Q4

REPORT INFORMATION
  Report Type: Spontaneous
  Country: JP (occurrence: JP)
  Receive Date: 20231214
  Receipt Date: 20231214
  Transmission Date: 20240110
  Serious: Yes (Death, Hospitalization)
  Sender: FDA-Public Use
  Company Number: JP-MYE-2023M1131532AA

PATIENT
  Age: 70 Year
  Sex: Male

DRUGS (1)
  1. CELECOXIB [Suspect]
     Active Substance: CELECOXIB
     Indication: Arthralgia
     Dosage: UNK
     Route: 065

REACTIONS (3)
  - Vanishing bile duct syndrome [Fatal]
  - Drug-induced liver injury [Fatal]
  - Hepatic failure [Fatal]
